FAERS Safety Report 21002865 (Version 1)
Quarter: 2022Q2

REPORT INFORMATION
  Report Type: Spontaneous
  Country: PT (occurrence: None)
  Receive Date: 20220624
  Receipt Date: 20220624
  Transmission Date: 20220721
  Serious: Yes (Death)
  Sender: FDA-Public Use
  Company Number: 2022A230953

PATIENT
  Sex: Female

DRUGS (1)
  1. SELUMETINIB [Suspect]
     Active Substance: SELUMETINIB
     Route: 048
     Dates: start: 20210619, end: 20210806

REACTIONS (3)
  - Cardio-respiratory arrest [Fatal]
  - Brain oedema [Fatal]
  - Eczema [Unknown]
